FAERS Safety Report 21027206 (Version 1)
Quarter: 2022Q2

REPORT INFORMATION
  Report Type: Spontaneous
  Country: US (occurrence: US)
  Receive Date: 20220630
  Receipt Date: 20220630
  Transmission Date: 20220721
  Serious: No
  Sender: FDA-Public Use
  Company Number: US-JNJFOC-20220646788

PATIENT
  Age: 57 Year
  Sex: Female
  Weight: 86.260 kg

DRUGS (1)
  1. SIMPONI [Suspect]
     Active Substance: GOLIMUMAB
     Indication: Rheumatoid arthritis
     Route: 058
     Dates: start: 20220612

REACTIONS (3)
  - Accidental exposure to product [Unknown]
  - Injection site pain [Unknown]
  - Underdose [Unknown]

NARRATIVE: CASE EVENT DATE: 20220612
